FAERS Safety Report 19618373 (Version 1)
Quarter: 2021Q3

REPORT INFORMATION
  Report Type: Spontaneous
  Country: FR (occurrence: FR)
  Receive Date: 20210728
  Receipt Date: 20210728
  Transmission Date: 20211014
  Serious: Yes (Other)
  Sender: FDA-Public Use
  Company Number: NVSC2021FR158558

PATIENT
  Age: 69 Year
  Sex: Female

DRUGS (1)
  1. FULVESTRANT. [Suspect]
     Active Substance: FULVESTRANT
     Indication: BREAST CANCER FEMALE
     Dosage: UNK
     Route: 030

REACTIONS (4)
  - Toxicity to various agents [Unknown]
  - Malignant neoplasm progression [Unknown]
  - Off label use [Unknown]
  - Therapeutic response decreased [Unknown]
